FAERS Safety Report 7411342-X (Version None)
Quarter: 2011Q2

REPORT INFORMATION
  Report Type: 
  Country: None (occurrence: None)
  Receive Date: 20110413
  Receipt Date: 20110405
  Transmission Date: 20111010
  Serious: Yes (Other)
  Sender: FDA-Public Use
  Company Number: US-JNJFOC-20110403876

PATIENT
  Sex: Male

DRUGS (10)
  1. LEVAQUIN [Suspect]
     Indication: SINUSITIS
     Route: 065
  2. LEVAQUIN [Suspect]
     Route: 065
  3. LEVAQUIN [Suspect]
     Route: 065
  4. LEVAQUIN [Suspect]
     Route: 065
  5. LEVAQUIN [Suspect]
     Route: 065
  6. LEVAQUIN [Suspect]
     Route: 065
  7. LEVAQUIN [Suspect]
     Route: 065
  8. LEVAQUIN [Suspect]
     Route: 065
  9. LEVAQUIN [Suspect]
     Route: 065
  10. LEVAQUIN [Suspect]
     Route: 065

REACTIONS (8)
  - SENSORY LOSS [None]
  - FALL [None]
  - HYPOAESTHESIA [None]
  - ARTHRALGIA [None]
  - PERIPHERAL COLDNESS [None]
  - MYALGIA [None]
  - PARAESTHESIA [None]
  - JOINT SPRAIN [None]
